FAERS Safety Report 6353560 (Version 5)
Quarter: 2020Q2

REPORT INFORMATION
  Report Type: Spontaneous
  Country: GB (occurrence: GB)
  Receive Date: 20070710
  Receipt Date: 20200624
  Transmission Date: 20200714
  Serious: Yes (Hospitalization, Other)
  Sender: FDA-Public Use
  Company Number: GB-PFIZER INC-2007054133

PATIENT
  Age: 62 Year
  Sex: Female
  Weight: 80 kg

DRUGS (6)
  1. EPANUTIN [Suspect]
     Active Substance: PHENYTOIN SODIUM
     Indication: EPILEPSY
     Dosage: 400 MG, 1X/DAY
     Route: 048
     Dates: start: 2003
  2. EPANUTIN [Suspect]
     Active Substance: PHENYTOIN SODIUM
     Indication: BREAST DISORDER
     Dosage: 300 MG, 1X/DAY (AT NIGHT)
     Dates: end: 2007
  3. CARBAMAZEPINE. [Suspect]
     Active Substance: CARBAMAZEPINE
     Dosage: UNK
  4. FLUCLOXACILLIN [Suspect]
     Active Substance: FLUCLOXACILLIN
     Dosage: UNK
  5. CIPROFLOXACIN HYDROCHLORIDE. [Concomitant]
     Active Substance: CIPROFLOXACIN HYDROCHLORIDE
     Indication: INFECTION
     Dosage: UNK
     Route: 048
     Dates: start: 20070514, end: 20070518
  6. CIPROFLOXACIN HYDROCHLORIDE. [Concomitant]
     Active Substance: CIPROFLOXACIN HYDROCHLORIDE
     Indication: LEUKOPENIA

REACTIONS (14)
  - Dizziness [Recovered/Resolved]
  - Head discomfort [Recovered/Resolved]
  - Leukopenia [Unknown]
  - Infection [Unknown]
  - Nerve injury [Unknown]
  - Malaise [Recovered/Resolved]
  - Anticonvulsant drug level increased [Recovered/Resolved]
  - Hallucination [Unknown]
  - Anticonvulsant drug level decreased [Unknown]
  - Breast disorder [Unknown]
  - Breast cancer female [Unknown]
  - Nystagmus [Recovered/Resolved]
  - Toxicity to various agents [Unknown]
  - Dysgeusia [Unknown]

NARRATIVE: CASE EVENT DATE: 2007
